FAERS Safety Report 11853216 (Version 6)
Quarter: 2019Q1

REPORT INFORMATION
  Report Type: Spontaneous
  Country: SE (occurrence: SE)
  Receive Date: 20151218
  Receipt Date: 20190117
  Transmission Date: 20190417
  Serious: Yes (Disabling, Other)
  Sender: FDA-Public Use
  Company Number: SE-GILEAD-2015-0185866

PATIENT
  Age: 61 Year
  Sex: Male

DRUGS (86)
  1. MABTHERA [Concomitant]
     Active Substance: RITUXIMAB
     Indication: CHRONIC LYMPHOCYTIC LEUKAEMIA
     Dosage: 1000 UNK, UNK
     Route: 065
     Dates: start: 20151007
  2. METFORMIN [Concomitant]
     Active Substance: METFORMIN HYDROCHLORIDE
     Dosage: UNK
     Route: 048
  3. AMLODIPINE [Concomitant]
     Active Substance: AMLODIPINE BESYLATE
     Indication: HYPERTENSION
     Route: 048
  4. AMLODIPINE [Concomitant]
     Active Substance: AMLODIPINE BESYLATE
     Route: 048
  5. AMLODIPINE [Concomitant]
     Active Substance: AMLODIPINE BESYLATE
     Route: 048
  6. AMLODIPINE [Concomitant]
     Active Substance: AMLODIPINE BESYLATE
     Route: 048
  7. PARACETAMOL [Concomitant]
     Active Substance: ACETAMINOPHEN
  8. PARACETAMOL [Concomitant]
     Active Substance: ACETAMINOPHEN
  9. PARACETAMOL [Concomitant]
     Active Substance: ACETAMINOPHEN
  10. CETIRIZIN [Concomitant]
     Active Substance: CETIRIZINE HYDROCHLORIDE
  11. SULFAMETOXAZOL [Concomitant]
     Active Substance: SULFAMETHOXAZOLE
  12. LOSARTAN. [Concomitant]
     Active Substance: LOSARTAN
     Indication: HYPERTENSION
     Route: 048
  13. LOSARTAN. [Concomitant]
     Active Substance: LOSARTAN
     Route: 048
  14. LOSARTAN. [Concomitant]
     Active Substance: LOSARTAN
     Route: 048
  15. PARACETAMOL [Concomitant]
     Active Substance: ACETAMINOPHEN
  16. CETIRIZIN [Concomitant]
     Active Substance: CETIRIZINE HYDROCHLORIDE
  17. SULFAMETOXAZOL [Concomitant]
     Active Substance: SULFAMETHOXAZOLE
  18. METFORMIN [Concomitant]
     Active Substance: METFORMIN HYDROCHLORIDE
     Dosage: UNK
     Route: 048
  19. METFORMIN [Concomitant]
     Active Substance: METFORMIN HYDROCHLORIDE
     Dosage: UNK
     Route: 048
  20. AMLODIPINE [Concomitant]
     Active Substance: AMLODIPINE BESYLATE
     Route: 048
  21. AMLODIPINE [Concomitant]
     Active Substance: AMLODIPINE BESYLATE
     Route: 048
  22. LOSARTAN. [Concomitant]
     Active Substance: LOSARTAN
     Route: 048
  23. LOSARTAN. [Concomitant]
     Active Substance: LOSARTAN
     Route: 048
  24. LOSARTAN. [Concomitant]
     Active Substance: LOSARTAN
     Route: 048
  25. LOSARTAN. [Concomitant]
     Active Substance: LOSARTAN
     Route: 048
  26. LOSARTAN. [Concomitant]
     Active Substance: LOSARTAN
     Route: 048
  27. LOSARTAN. [Concomitant]
     Active Substance: LOSARTAN
     Route: 048
  28. PARACETAMOL [Concomitant]
     Active Substance: ACETAMINOPHEN
  29. PARACETAMOL [Concomitant]
     Active Substance: ACETAMINOPHEN
  30. PARACETAMOL [Concomitant]
     Active Substance: ACETAMINOPHEN
  31. SULFAMETOXAZOL [Concomitant]
     Active Substance: SULFAMETHOXAZOLE
  32. SULFAMETOXAZOL [Concomitant]
     Active Substance: SULFAMETHOXAZOLE
  33. METFORMIN [Concomitant]
     Active Substance: METFORMIN HYDROCHLORIDE
     Dosage: UNK
     Route: 048
  34. METFORMIN [Concomitant]
     Active Substance: METFORMIN HYDROCHLORIDE
     Dosage: UNK
     Route: 048
  35. METFORMIN [Concomitant]
     Active Substance: METFORMIN HYDROCHLORIDE
     Dosage: UNK
     Route: 048
  36. METFORMIN [Concomitant]
     Active Substance: METFORMIN HYDROCHLORIDE
     Dosage: UNK
     Route: 048
  37. AMLODIPINE [Concomitant]
     Active Substance: AMLODIPINE BESYLATE
     Route: 048
  38. AMLODIPINE [Concomitant]
     Active Substance: AMLODIPINE BESYLATE
     Route: 048
  39. AMLODIPINE [Concomitant]
     Active Substance: AMLODIPINE BESYLATE
     Route: 048
  40. AMLODIPINE [Concomitant]
     Active Substance: AMLODIPINE BESYLATE
     Route: 048
  41. LOSARTAN. [Concomitant]
     Active Substance: LOSARTAN
     Route: 048
  42. LOSARTAN. [Concomitant]
     Active Substance: LOSARTAN
     Route: 048
  43. LOSARTAN. [Concomitant]
     Active Substance: LOSARTAN
     Route: 048
  44. PARACETAMOL [Concomitant]
     Active Substance: ACETAMINOPHEN
  45. CETIRIZIN [Concomitant]
     Active Substance: CETIRIZINE HYDROCHLORIDE
  46. CETIRIZIN [Concomitant]
     Active Substance: CETIRIZINE HYDROCHLORIDE
  47. SULFAMETOXAZOL [Concomitant]
     Active Substance: SULFAMETHOXAZOLE
  48. SULFAMETOXAZOL [Concomitant]
     Active Substance: SULFAMETHOXAZOLE
  49. ZYDELIG [Suspect]
     Active Substance: IDELALISIB
     Indication: CHRONIC LYMPHOCYTIC LEUKAEMIA
     Dosage: 150 MG, BID
     Route: 048
     Dates: start: 20151007, end: 20151127
  50. METFORMIN [Concomitant]
     Active Substance: METFORMIN HYDROCHLORIDE
     Dosage: UNK
     Route: 048
  51. METFORMIN [Concomitant]
     Active Substance: METFORMIN HYDROCHLORIDE
     Dosage: UNK
     Route: 048
  52. AMLODIPINE [Concomitant]
     Active Substance: AMLODIPINE BESYLATE
     Route: 048
  53. LOSARTAN. [Concomitant]
     Active Substance: LOSARTAN
     Route: 048
  54. PARACETAMOL [Concomitant]
     Active Substance: ACETAMINOPHEN
  55. CETIRIZIN [Concomitant]
     Active Substance: CETIRIZINE HYDROCHLORIDE
  56. CETIRIZIN [Concomitant]
     Active Substance: CETIRIZINE HYDROCHLORIDE
  57. CETIRIZIN [Concomitant]
     Active Substance: CETIRIZINE HYDROCHLORIDE
  58. SULFAMETOXAZOL [Concomitant]
     Active Substance: SULFAMETHOXAZOLE
     Indication: PROPHYLAXIS
  59. SULFAMETOXAZOL [Concomitant]
     Active Substance: SULFAMETHOXAZOLE
  60. METFORMIN [Concomitant]
     Active Substance: METFORMIN HYDROCHLORIDE
     Indication: DIABETES MELLITUS
     Dosage: UNK
     Route: 048
  61. METFORMIN [Concomitant]
     Active Substance: METFORMIN HYDROCHLORIDE
     Dosage: UNK
     Route: 048
  62. METFORMIN [Concomitant]
     Active Substance: METFORMIN HYDROCHLORIDE
     Dosage: UNK
     Route: 048
  63. METFORMIN [Concomitant]
     Active Substance: METFORMIN HYDROCHLORIDE
     Dosage: UNK
     Route: 048
  64. METFORMIN [Concomitant]
     Active Substance: METFORMIN HYDROCHLORIDE
     Dosage: UNK
     Route: 048
  65. LOSARTAN. [Concomitant]
     Active Substance: LOSARTAN
     Route: 048
  66. PARACETAMOL [Concomitant]
     Active Substance: ACETAMINOPHEN
  67. PARACETAMOL [Concomitant]
     Active Substance: ACETAMINOPHEN
  68. CETIRIZIN [Concomitant]
     Active Substance: CETIRIZINE HYDROCHLORIDE
  69. CETIRIZIN [Concomitant]
     Active Substance: CETIRIZINE HYDROCHLORIDE
  70. METFORMIN [Concomitant]
     Active Substance: METFORMIN HYDROCHLORIDE
     Dosage: UNK
     Route: 048
  71. AMLODIPINE [Concomitant]
     Active Substance: AMLODIPINE BESYLATE
     Route: 048
  72. AMLODIPINE [Concomitant]
     Active Substance: AMLODIPINE BESYLATE
     Route: 048
  73. AMLODIPINE [Concomitant]
     Active Substance: AMLODIPINE BESYLATE
     Route: 048
  74. LOSARTAN. [Concomitant]
     Active Substance: LOSARTAN
     Route: 048
  75. LOSARTAN. [Concomitant]
     Active Substance: LOSARTAN
     Route: 048
  76. CETIRIZIN [Concomitant]
     Active Substance: CETIRIZINE HYDROCHLORIDE
  77. CETIRIZIN [Concomitant]
     Active Substance: CETIRIZINE HYDROCHLORIDE
  78. SULFAMETOXAZOL [Concomitant]
     Active Substance: SULFAMETHOXAZOLE
  79. SULFAMETOXAZOL [Concomitant]
     Active Substance: SULFAMETHOXAZOLE
  80. METFORMIN [Concomitant]
     Active Substance: METFORMIN HYDROCHLORIDE
     Dosage: UNK
     Route: 048
  81. AMLODIPINE [Concomitant]
     Active Substance: AMLODIPINE BESYLATE
     Route: 048
  82. AMLODIPINE [Concomitant]
     Active Substance: AMLODIPINE BESYLATE
     Route: 048
  83. PARACETAMOL [Concomitant]
     Active Substance: ACETAMINOPHEN
  84. CETIRIZIN [Concomitant]
     Active Substance: CETIRIZINE HYDROCHLORIDE
  85. SULFAMETOXAZOL [Concomitant]
     Active Substance: SULFAMETHOXAZOLE
  86. SULFAMETOXAZOL [Concomitant]
     Active Substance: SULFAMETHOXAZOLE

REACTIONS (9)
  - Blister [Unknown]
  - Rash maculo-papular [Recovered/Resolved]
  - Pain [Unknown]
  - Rash generalised [Unknown]
  - Pruritus [Recovered/Resolved]
  - Thrombocytopenia [Unknown]
  - Hypersensitivity vasculitis [Not Recovered/Not Resolved]
  - Rash macular [Unknown]
  - Burning sensation [Unknown]

NARRATIVE: CASE EVENT DATE: 201511
